FAERS Safety Report 8591593-1 (Version None)
Quarter: 2012Q3

REPORT INFORMATION
  Report Type: 
  Country: None (occurrence: None)
  Receive Date: 20120814
  Receipt Date: 20120810
  Transmission Date: 20120928
  Serious: No
  Sender: FDA-Public Use
  Company Number: US-PFIZER INC-2012062158

PATIENT
  Age: 80 Year
  Sex: Female
  Weight: 90 kg

DRUGS (22)
  1. MULTI-VITAMINS [Concomitant]
     Dosage: UNK
  2. LYRICA [Suspect]
     Dosage: 100 MG, 2X/DAY
  3. L-CARNITINE [Concomitant]
     Dosage: UNK, 1X/DAY
  4. CELEXA [Concomitant]
     Dosage: 20 MG, AT BEDTIME
  5. PLAVIX [Concomitant]
     Indication: CARDIAC DISORDER
     Dosage: 75 MG, 1X/DAY
  6. LASIX [Concomitant]
     Dosage: 20 MG, 2X/DAY
  7. SIMVASTATIN [Concomitant]
     Dosage: 80 MG, 1X/DAY
  8. FOLIC ACID [Concomitant]
     Dosage: 800 UG, 1X/DAY
  9. LYRICA [Suspect]
     Dosage: 100 MG, 3X/DAY
  10. HYDROCODONE BITARTRATE AND ACETAMINOPHEN [Concomitant]
     Dosage: 500 MG, AS NEEDED
  11. ACETYLSALICYLIC ACID [Concomitant]
     Dosage: UNK
  12. MAGNESIUM [Concomitant]
     Dosage: 250 MG, 1X/DAY
  13. XANAX [Suspect]
     Dosage: 0.5 MG, AS NEEDED
  14. EFFEXOR XR [Suspect]
     Indication: DEPRESSION
     Dosage: 75 MG, 3X/DAY
     Route: 048
     Dates: start: 20110301
  15. BIOTIN [Concomitant]
     Dosage: 1000 UG, 1X/DAY
  16. CRESTOR [Concomitant]
     Dosage: 10 MG, 1X/DAY
  17. ASCORBIC ACID [Concomitant]
     Dosage: UNK, 1X/DAY
  18. CELEBREX [Suspect]
     Dosage: 200 MG, 1X/DAY
  19. NITROGLYCERIN [Concomitant]
     Dosage: 2.5 MG, 2X/DAY
  20. LECITHIN [Concomitant]
     Dosage: 400 MG, 1X/DAY
  21. COQ-10 [Concomitant]
     Dosage: UNK, 1X/DAY
  22. POTASSIUM CHLORIDE [Concomitant]
     Dosage: 10 MEQ, 2X/DAY

REACTIONS (1)
  - WEIGHT INCREASED [None]
